FAERS Safety Report 7762440-2 (Version None)
Quarter: 2011Q3

REPORT INFORMATION
  Report Type: 
  Country: None (occurrence: None)
  Receive Date: 20110920
  Receipt Date: 20110715
  Transmission Date: 20111222
  Serious: No
  Sender: FDA-Public Use
  Company Number: US-MYLANLABS-2011S1014819

PATIENT
  Sex: Female

DRUGS (1)
  1. NIFEDIPINE [Suspect]
     Dates: start: 20110101

REACTIONS (3)
  - DRY MOUTH [None]
  - INSOMNIA [None]
  - ABNORMAL DREAMS [None]
